FAERS Safety Report 6373538-8 (Version None)
Quarter: 2009Q3

REPORT INFORMATION
  Report Type: 
  Country: None (occurrence: None)
  Receive Date: 20090924
  Receipt Date: 20090226
  Transmission Date: 20100115
  Serious: Yes (Hospitalization)
  Sender: FDA-Public Use
  Company Number: US-ASTRAZENECA-2009UW05344

PATIENT
  Sex: Male

DRUGS (4)
  1. SEROQUEL [Suspect]
     Indication: BIPOLAR DISORDER
     Route: 048
  2. REMERON [Concomitant]
     Route: 048
  3. DEPAKOTE [Concomitant]
  4. THORAZINE [Concomitant]

REACTIONS (1)
  - MANIA [None]
